FAERS Safety Report 9027368 (Version 1)
Quarter: 2013Q1

REPORT INFORMATION
  Report Type: Report from Study
  Country: US (occurrence: US)
  Receive Date: 20130123
  Receipt Date: 20130123
  Transmission Date: 20140127
  Serious: Yes (Hospitalization)
  Sender: FDA-Public Use
  Company Number: US-ABBOTT-12P-163-1007628-00

PATIENT
  Age: 53 Year
  Sex: Female

DRUGS (3)
  1. ERYTHROMYCIN BASE FILMTAB [Suspect]
     Indication: SINUSITIS
     Dates: start: 2012, end: 2012
  2. PREDNISONE [Suspect]
     Indication: PRURITUS
     Route: 042
     Dates: start: 2012, end: 2012
  3. PREDNISONE [Suspect]
     Indication: URTICARIA

REACTIONS (5)
  - Pruritus [Recovered/Resolved]
  - Urticaria [Recovered/Resolved]
  - Post procedural haematoma [Recovered/Resolved]
  - Coagulation test abnormal [Recovered/Resolved]
  - Osteorrhagia [Recovered/Resolved]
